FAERS Safety Report 6082164-X (Version None)
Quarter: 2009Q1

REPORT INFORMATION
  Report Type: 
  Country: None (occurrence: None)
  Receive Date: 20090218
  Receipt Date: 20090210
  Transmission Date: 20090719
  Serious: Yes (Hospitalization)
  Sender: FDA-Public Use
  Company Number: A0744162A

PATIENT
  Age: 62 Year
  Sex: Male
  Weight: 118.2 kg

DRUGS (4)
  1. AVANDIA [Suspect]
     Dosage: 8MG PER DAY
     Route: 048
     Dates: start: 20050720, end: 20070101
  2. LOPRESSOR [Concomitant]
     Dates: start: 20060101
  3. NITROGLYCERIN [Concomitant]
     Dates: start: 20060101, end: 20070101
  4. ZOCOR [Concomitant]
     Dates: start: 20060101, end: 20070101

REACTIONS (4)
  - ACUTE CORONARY SYNDROME [None]
  - CARDIAC FAILURE CONGESTIVE [None]
  - CARDIOVASCULAR DISORDER [None]
  - MYOCARDIAL INFARCTION [None]
